FAERS Safety Report 9551084 (Version 1)
Quarter: 2013Q3

REPORT INFORMATION
  Report Type: Spontaneous
  Country: US (occurrence: US)
  Receive Date: 20130925
  Receipt Date: 20130925
  Transmission Date: 20140515
  Serious: No
  Sender: FDA-Public Use
  Company Number: US-009507513-1309USA010852

PATIENT
  Age: 18 Year
  Sex: Female
  Weight: 45.35 kg

DRUGS (1)
  1. IMPLANON [Suspect]
     Indication: CONTRACEPTION
     Dosage: 3 YEAR IMPLANT, IN LEFT ARM
     Route: 059
     Dates: start: 20111019

REACTIONS (3)
  - Stress [Unknown]
  - Menorrhagia [Recovered/Resolved]
  - Pain [Unknown]
